FAERS Safety Report 9907567 (Version 2)
Quarter: 2014Q4

REPORT INFORMATION
  Report Type: Report from Study
  Country: JP (occurrence: JP)
  Receive Date: 20140218
  Receipt Date: 20141219
  Transmission Date: 20150529
  Serious: Yes (Death)
  Sender: FDA-Public Use
  Company Number: JP-ROCHE-1348393

PATIENT
  Sex: Female
  Weight: 38 kg

DRUGS (4)
  1. METHOXY POLYETHYLENE GLYCOL-EPOETIN BETA [Suspect]
     Active Substance: PEGZEREPOETIN ALFA
     Indication: NEPHROGENIC ANAEMIA
     Route: 042
     Dates: start: 20130318, end: 20130513
  2. FESIN (JAPAN) [Concomitant]
     Active Substance: IRON SUCROSE
     Indication: GLOMERULONEPHRITIS CHRONIC
     Route: 042
     Dates: start: 20130405, end: 20130503
  3. METHOXY POLYETHYLENE GLYCOL-EPOETIN BETA [Suspect]
     Active Substance: PEGZEREPOETIN ALFA
     Indication: NEPHROGENIC ANAEMIA
     Route: 042
     Dates: start: 20130204, end: 20130304
  4. METHOXY POLYETHYLENE GLYCOL-EPOETIN BETA [Suspect]
     Active Substance: PEGZEREPOETIN ALFA
     Indication: NEPHROGENIC ANAEMIA
     Route: 042
     Dates: start: 20121210, end: 20130121

REACTIONS (1)
  - Death [Fatal]
